FAERS Safety Report 10857613 (Version 1)
Quarter: 2015Q1

REPORT INFORMATION
  Report Type: Spontaneous
  Country: US (occurrence: US)
  Receive Date: 20150223
  Receipt Date: 20150223
  Transmission Date: 20150721
  Serious: No
  Sender: FDA-Public Use
  Company Number: US-ENDO PHARMACEUTICALS INC.-HCDA20150004

PATIENT
  Sex: Female

DRUGS (1)
  1. HYDROCODONE BITRATRATE/APAP TABLETS [Suspect]
     Active Substance: ACETAMINOPHEN\HYDROCODONE BITARTRATE
     Indication: PRODUCT USED FOR UNKNOWN INDICATION
     Route: 065
     Dates: start: 2013

REACTIONS (2)
  - Swelling [Unknown]
  - Pruritus [Unknown]

NARRATIVE: CASE EVENT DATE: 2013
